FAERS Safety Report 9490604 (Version 1)
Quarter: 2013Q3

REPORT INFORMATION
  Report Type: Spontaneous
  Country: NL (occurrence: None)
  Receive Date: 20130826
  Receipt Date: 20130826
  Transmission Date: 20140515
  Serious: Yes (Other)
  Sender: FDA-Public Use
  Company Number: KAD201308-001045

PATIENT
  Sex: 0

DRUGS (1)
  1. AMPHOTERICIN B [Suspect]

REACTIONS (6)
  - Overdose [None]
  - Hypokalaemia [None]
  - Renal failure acute [None]
  - Drug administration error [None]
  - Circumstance or information capable of leading to medication error [None]
  - Product name confusion [None]
